FAERS Safety Report 8934565 (Version 4)
Quarter: 2013Q1

REPORT INFORMATION
  Report Type: Spontaneous
  Country: US (occurrence: US)
  Receive Date: 20121129
  Receipt Date: 20130122
  Transmission Date: 20140127
  Serious: Yes (Other)
  Sender: FDA-Public Use
  Company Number: US-PFIZER INC-2012299712

PATIENT
  Age: 42 Year
  Sex: Female
  Weight: 70 kg

DRUGS (2)
  1. GABAPENTIN [Suspect]
     Indication: MIGRAINE
     Dosage: 100 MG, 1X/DAY
     Route: 048
     Dates: start: 2004, end: 2004
  2. OXYCODONE [Concomitant]
     Dosage: UNK

REACTIONS (7)
  - Confusional state [Unknown]
  - Speech disorder [Unknown]
  - Weight increased [Recovered/Resolved]
  - Headache [Unknown]
  - Off label use [Unknown]
  - Drug hypersensitivity [Unknown]
  - Drug intolerance [Unknown]
